FAERS Safety Report 7739329-8 (Version None)
Quarter: 2011Q3

REPORT INFORMATION
  Report Type: 
  Country: None (occurrence: None)
  Receive Date: 20110909
  Receipt Date: 20110830
  Transmission Date: 20111222
  Serious: Yes (Congenital Anomaly, Other)
  Sender: FDA-Public Use
  Company Number: FR-UCBSA-040449

PATIENT
  Sex: Female

DRUGS (2)
  1. KEPPRA [Suspect]
     Indication: EPILEPSY
     Route: 064
     Dates: start: 20110123
  2. SPECIAFOLDINE [Concomitant]
     Dosage: ONE TABLET DAILY
     Route: 064
     Dates: start: 20110123

REACTIONS (2)
  - MATERNAL EXPOSURE DURING PREGNANCY [None]
  - CLEFT LIP [None]
